FAERS Safety Report 4537075-5 (Version None)
Quarter: 2004Q4

REPORT INFORMATION
  Report Type: 
  Country: None (occurrence: None)
  Receive Date: 20041223
  Receipt Date: 20041025
  Transmission Date: 20050328
  Serious: Yes (Other)
  Sender: FDA-Public Use
  Company Number: US-GLAXOSMITHKLINE-A0532578A

PATIENT
  Age: 35 Year
  Sex: Female
  Weight: 134.1 kg

DRUGS (5)
  1. PAXIL [Suspect]
     Indication: DEPRESSION
     Route: 048
     Dates: start: 19960213
  2. LEVOXYL [Concomitant]
  3. BIRTH CONTROL PILL [Concomitant]
  4. ACYCLOVIR [Concomitant]
  5. GLUCOPHAGE [Concomitant]

REACTIONS (18)
  - ABNORMAL DREAMS [None]
  - AFFECT LABILITY [None]
  - AGITATION [None]
  - CRYING [None]
  - DIZZINESS [None]
  - DRUG WITHDRAWAL SYNDROME [None]
  - EMOTIONAL DISORDER [None]
  - HEADACHE [None]
  - HEART RATE INCREASED [None]
  - HOMICIDAL IDEATION [None]
  - IRRITABILITY [None]
  - PARAESTHESIA [None]
  - SOMNOLENCE [None]
  - STRESS SYMPTOMS [None]
  - SUICIDAL IDEATION [None]
  - TEARFULNESS [None]
  - TINNITUS [None]
  - TREMOR [None]
